FAERS Safety Report 8951160 (Version 1)
Quarter: 2012Q4

REPORT INFORMATION
  Report Type: 
  Country: BR (occurrence: BR)
  Receive Date: 20121207
  Receipt Date: 20121207
  Transmission Date: 20130627
  Serious: Yes (Other)
  Sender: FDA-Public Use
  Company Number: PHHY2012BR111411

PATIENT
  Sex: Male

DRUGS (2)
  1. ZELMAC [Suspect]
     Dosage: 6 mg, QD (daily)
     Dates: start: 20121129
  2. EXELON PATCH [Suspect]
     Indication: COGNITIVE DISORDER
     Dosage: 4.6 mg / 24 Hrs, QD
     Route: 062
     Dates: start: 2010

REACTIONS (1)
  - Gastrointestinal disorder [Recovered/Resolved]
